FAERS Safety Report 22400074 (Version 1)
Quarter: 2023Q2

REPORT INFORMATION
  Report Type: Spontaneous
  Country: KR (occurrence: KR)
  Receive Date: 20230602
  Receipt Date: 20230602
  Transmission Date: 20230721
  Serious: Yes (Hospitalization)
  Sender: FDA-Public Use
  Company Number: KR-ORGANON-O2305KOR003096

PATIENT
  Age: 62 Year
  Sex: Male
  Weight: 177 kg

DRUGS (12)
  1. COZAAR [Suspect]
     Active Substance: LOSARTAN POTASSIUM
     Indication: Essential hypertension
     Dosage: 0.5 FORMULATION ONE DAY
     Route: 048
     Dates: start: 20170927
  2. ASPIRIN [Suspect]
     Active Substance: ASPIRIN
     Dosage: 300 MILLIGRAM, ONE DAY
     Route: 048
     Dates: start: 20170926
  3. ASPIRIN [Suspect]
     Active Substance: ASPIRIN
     Dosage: 100 MILLIGRAM, 1 DAY
     Route: 048
     Dates: start: 20170927
  4. ROSUVASTATIN CALCIUM [Concomitant]
     Active Substance: ROSUVASTATIN CALCIUM
     Indication: Arteriosclerosis coronary artery
     Dosage: 1 FORMULATION 1 DAY
     Route: 048
     Dates: start: 20170926
  5. ISOSORBIDE MONONITRATE [Concomitant]
     Active Substance: ISOSORBIDE MONONITRATE
     Indication: Arteriosclerosis coronary artery
     Dosage: 0.5 FORMULATION ONE DAY
     Route: 048
     Dates: start: 20170926, end: 20170928
  6. NICORANDIL [Concomitant]
     Active Substance: NICORANDIL
     Indication: Arteriosclerosis coronary artery
     Dosage: 1 FORMULATION 1 DAY
     Route: 048
     Dates: start: 20170926, end: 20170927
  7. NICORANDIL [Concomitant]
     Active Substance: NICORANDIL
     Dosage: 1 FORMULATION 0.5 DAY
     Route: 048
     Dates: start: 20170928
  8. TRIMETAZIDINE DIHYDROCHLORIDE [Concomitant]
     Active Substance: TRIMETAZIDINE DIHYDROCHLORIDE
     Indication: Arteriosclerosis coronary artery
     Dosage: 1 FORMULATION 1 DAY
     Route: 048
     Dates: start: 20170926, end: 20170927
  9. TRIMETAZIDINE DIHYDROCHLORIDE [Concomitant]
     Active Substance: TRIMETAZIDINE DIHYDROCHLORIDE
     Dosage: 1 FORMULATION 0.5 DAY
     Route: 048
     Dates: start: 20170928
  10. METFORMIN HYDROCHLORIDE [Concomitant]
     Active Substance: METFORMIN HYDROCHLORIDE
     Indication: Diabetes mellitus
     Dosage: 1 FORMULATION 1 DAY
     Route: 048
     Dates: start: 20170927
  11. GLIMEPIRIDE [Concomitant]
     Active Substance: GLIMEPIRIDE
     Indication: Diabetes mellitus
     Dosage: 1 FORMULATION 1 DAY
     Route: 048
     Dates: start: 20170927
  12. CARVEDILOL [Concomitant]
     Active Substance: CARVEDILOL
     Indication: Arteriosclerosis coronary artery
     Dosage: 1 FORMULATION 1 DAY
     Route: 048
     Dates: start: 20170929

REACTIONS (2)
  - Diverticulum [Recovered/Resolved]
  - Diverticulum [Recovered/Resolved]

NARRATIVE: CASE EVENT DATE: 20171011
